FAERS Safety Report 6936723-X (Version None)
Quarter: 2010Q3

REPORT INFORMATION
  Report Type: 
  Country: None (occurrence: None)
  Receive Date: 20100818
  Receipt Date: 20100803
  Transmission Date: 20110219
  Serious: Yes (Other)
  Sender: FDA-Public Use
  Company Number: 016735

PATIENT
  Sex: Female
  Weight: 2.268 kg

DRUGS (6)
  1. KEPPRA [Suspect]
     Indication: EPILEPSY
     Dosage: (1000 MG TRANSPLACENTAL), (1500 MG TRANSPLACENTAL)
     Route: 064
     Dates: end: 20080212
  2. KEPPRA [Suspect]
     Indication: EPILEPSY
     Dosage: (1000 MG TRANSPLACENTAL), (1500 MG TRANSPLACENTAL)
     Route: 064
     Dates: start: 20080212, end: 20080707
  3. NEURONTIN [Concomitant]
  4. CYMBALTA [Concomitant]
  5. PRENATAL VITAMINS /01543901/ [Concomitant]
  6. FOLIC ACID [Concomitant]

REACTIONS (4)
  - CONVULSION [None]
  - HYPOTONIA NEONATAL [None]
  - MATERNAL DRUGS AFFECTING FOETUS [None]
  - PREMATURE BABY [None]
